FAERS Safety Report 19949193 (Version 7)
Quarter: 2025Q2

REPORT INFORMATION
  Report Type: Spontaneous
  Country: US (occurrence: US)
  Receive Date: 20211013
  Receipt Date: 20250509
  Transmission Date: 20250717
  Serious: Yes (Hospitalization, Disabling, Other)
  Sender: ORGANON
  Company Number: US-ORGANON-O2110USA000864

PATIENT
  Sex: Female
  Weight: 72.57 kg

DRUGS (6)
  1. SINGULAIR [Suspect]
     Active Substance: MONTELUKAST SODIUM
     Route: 048
  2. METFORMIN [Concomitant]
     Active Substance: METFORMIN HYDROCHLORIDE
  3. B VITAMIN KOMPLEX [Concomitant]
  4. ARMOUR THYROID [Concomitant]
     Active Substance: THYROID, PORCINE
  5. TOPROL XL [Concomitant]
     Active Substance: METOPROLOL SUCCINATE
  6. ASPIRIN [Concomitant]
     Active Substance: ASPIRIN

REACTIONS (25)
  - Neuropsychological symptoms [Not Recovered/Not Resolved]
  - Multiple sclerosis [Unknown]
  - Sleep terror [Not Recovered/Not Resolved]
  - Vision blurred [Unknown]
  - Hypoaesthesia [Unknown]
  - Panic attack [Not Recovered/Not Resolved]
  - Stenosis [Not Recovered/Not Resolved]
  - Tic [Not Recovered/Not Resolved]
  - Anxiety disorder [Not Recovered/Not Resolved]
  - Dysphemia [Not Recovered/Not Resolved]
  - Tremor [Not Recovered/Not Resolved]
  - Hypoaesthesia [Recovering/Resolving]
  - Asthenia [Unknown]
  - Intervertebral disc degeneration [Unknown]
  - Spinal stenosis [Unknown]
  - Neck pain [Not Recovered/Not Resolved]
  - Back pain [Not Recovered/Not Resolved]
  - Paraesthesia [Recovering/Resolving]
  - Pain [Not Recovered/Not Resolved]
  - Tenderness [Not Recovered/Not Resolved]
  - Arthralgia [Not Recovered/Not Resolved]
  - Muscle spasms [Not Recovered/Not Resolved]
  - Lumbar radiculopathy [Unknown]
  - Facet joint syndrome [Unknown]
  - Intervertebral disc protrusion [Unknown]

NARRATIVE: CASE EVENT DATE: 20080101
